FAERS Safety Report 13782468 (Version 1)
Quarter: 2017Q3

REPORT INFORMATION
  Report Type: Spontaneous
  Country: US (occurrence: US)
  Receive Date: 20170724
  Receipt Date: 20170724
  Transmission Date: 20171127
  Serious: Yes (Other)
  Sender: FDA-Public Use
  Company Number: US-PFIZER INC-2017317384

PATIENT
  Age: 67 Year
  Sex: Female

DRUGS (4)
  1. BIOFREEZE /00482701/ [Concomitant]
     Indication: PAIN
  2. ADVIL [Suspect]
     Active Substance: IBUPROFEN
     Indication: LIGAMENT SPRAIN
  3. ADVIL [Suspect]
     Active Substance: IBUPROFEN
     Indication: PAIN
     Dosage: 200 MG, AS NEEDED
  4. BIOFREEZE /00482701/ [Concomitant]
     Indication: LIGAMENT SPRAIN

REACTIONS (3)
  - Helminthic infection [Unknown]
  - Abdominal pain upper [Unknown]
  - Abdominal discomfort [Unknown]
